FAERS Safety Report 5397467-1 (Version None)
Quarter: 2007Q3

REPORT INFORMATION
  Report Type: 
  Country: None (occurrence: None)
  Receive Date: 20070723
  Receipt Date: 20070723
  Transmission Date: 20080115
  Serious: Yes (Other)
  Sender: FDA-Public Use
  Company Number: None

PATIENT
  Sex: Female

DRUGS (1)
  1. WELLBUTRIN XL [Suspect]
     Dosage: 300 QD PO CHANGED TO GENERIC ABOUT 2 1/2 MO AGO
     Route: 048

REACTIONS (4)
  - ANGER [None]
  - DEPRESSION [None]
  - MOOD SWINGS [None]
  - THERAPEUTIC RESPONSE UNEXPECTED WITH DRUG SUBSTITUTION [None]
